FAERS Safety Report 12492184 (Version 2)
Quarter: 2016Q2

REPORT INFORMATION
  Report Type: Spontaneous
  Country: GB (occurrence: GB)
  Receive Date: 20160623
  Receipt Date: 20160627
  Transmission Date: 20160815
  Serious: Yes (Other)
  Sender: FDA-Public Use
  Company Number: GB-009507513-1606GBR009198

PATIENT
  Age: 59 Year
  Sex: Female
  Weight: 70.76 kg

DRUGS (10)
  1. ALENDRONATE SODIUM. [Suspect]
     Active Substance: ALENDRONATE SODIUM
     Indication: OSTEOPOROSIS PROPHYLAXIS
     Dosage: 70 MG FREQUENCY UNKNOWN
     Route: 048
     Dates: start: 20160531, end: 20160608
  2. ATENOLOL. [Concomitant]
     Active Substance: ATENOLOL
  3. LETROZOLE. [Concomitant]
     Active Substance: LETROZOLE
  4. CALCIUM CARBONATE (+) CALCIUM PHOSPHATE, TRIBASIC (+) VITAMIN D (UNSPE [Concomitant]
  5. MAGNESIUM (UNSPECIFIED) [Concomitant]
     Active Substance: MAGNESIUM
  6. CHOLECALCIFEROL [Concomitant]
     Active Substance: CHOLECALCIFEROL
  7. COD LIVER OIL [Concomitant]
     Active Substance: COD LIVER OIL
  8. DIAZEPAM. [Concomitant]
     Active Substance: DIAZEPAM
  9. AMITRIPTYLINE HYDROCHLORIDE. [Concomitant]
     Active Substance: AMITRIPTYLINE HYDROCHLORIDE
  10. FELOTENS XL [Concomitant]

REACTIONS (11)
  - Malaise [Not Recovered/Not Resolved]
  - Disturbance in attention [Unknown]
  - Memory impairment [Unknown]
  - Arthralgia [Not Recovered/Not Resolved]
  - Fibromyalgia [Unknown]
  - Myalgia [Not Recovered/Not Resolved]
  - Feeling abnormal [Unknown]
  - Diarrhoea [Unknown]
  - Peripheral swelling [Not Recovered/Not Resolved]
  - Joint stiffness [Unknown]
  - Musculoskeletal stiffness [Unknown]

NARRATIVE: CASE EVENT DATE: 20160531
